FAERS Safety Report 8983955 (Version 1)
Quarter: 2013Q1

REPORT INFORMATION
  Report Type: Spontaneous
  Country: US (occurrence: None)
  Receive Date: 20121218
  Receipt Date: 20121218
  Transmission Date: 20140127
  Serious: Yes (Hospitalization)
  Sender: FDA-Public Use
  Company Number: None

PATIENT
  Age: 5 Year
  Sex: Male
  Weight: 16.9 kg

DRUGS (2)
  1. LEPTIN [Suspect]
     Dosage: 9 UNITS SQ BID
     Route: 058
     Dates: start: 201007
  2. LEPTIN [Suspect]
     Indication: HEPATOMEGALY
     Dosage: 9 UNITS SQ BID
     Route: 058
     Dates: start: 201007

REACTIONS (6)
  - Haematemesis [None]
  - Anaemia [None]
  - Tachycardia [None]
  - Hypotension [None]
  - Gastrooesophageal reflux disease [None]
  - Gastritis [None]
